FAERS Safety Report 12197721 (Version 1)
Quarter: 2016Q1

REPORT INFORMATION
  Report Type: Spontaneous
  Country: US (occurrence: None)
  Receive Date: 20160321
  Receipt Date: 20160321
  Transmission Date: 20160526
  Serious: Yes (Other)
  Sender: FDA-Public Use
  Company Number: None

PATIENT
  Age: 73 Year
  Sex: Male
  Weight: 64.41 kg

DRUGS (4)
  1. CATAPRES [Suspect]
     Active Substance: CLONIDINE HYDROCHLORIDE
     Indication: HYPERTENSION
     Dosage: 1 ONCE A WEEK  APPLIED TO A SURFACE USUALLY THE SKIN
     Route: 061
     Dates: start: 20151207, end: 20160225
  2. PRO-BIOTICS [Concomitant]
  3. MULTIVITAMINS [Concomitant]
     Active Substance: VITAMINS
  4. PEG TUBE [Concomitant]

REACTIONS (19)
  - Apnoea [None]
  - Myalgia [None]
  - Irregular breathing [None]
  - Weight decreased [None]
  - Skin exfoliation [None]
  - Discomfort [None]
  - Dry mouth [None]
  - Vision blurred [None]
  - Insomnia [None]
  - Dry skin [None]
  - Hyperventilation [None]
  - Depression [None]
  - Thinking abnormal [None]
  - Decreased appetite [None]
  - Anxiety [None]
  - Alopecia [None]
  - Fatigue [None]
  - Confusional state [None]
  - Muscle spasms [None]

NARRATIVE: CASE EVENT DATE: 20160225
